FAERS Safety Report 12564621 (Version 1)
Quarter: 2016Q3

REPORT INFORMATION
  Report Type: Report from Study
  Country: US (occurrence: US)
  Receive Date: 20160718
  Receipt Date: 20160718
  Transmission Date: 20161109
  Serious: Yes (Other)
  Sender: FDA-Public Use
  Company Number: US-AMGEN-USASP2016091363

PATIENT
  Age: 55 Year
  Sex: Female

DRUGS (1)
  1. ENBREL [Suspect]
     Active Substance: ETANERCEPT
     Indication: PSORIATIC ARTHROPATHY
     Dosage: 50 MG, QWK
     Route: 065
     Dates: start: 2014, end: 2016

REACTIONS (9)
  - Injection site erythema [Unknown]
  - Injection site discomfort [Unknown]
  - Pain [Unknown]
  - Gastric disorder [Unknown]
  - Urticaria [Unknown]
  - Joint swelling [Unknown]
  - Peripheral swelling [Unknown]
  - Injection site swelling [Unknown]
  - Asthenia [Unknown]

NARRATIVE: CASE EVENT DATE: 2016
